FAERS Safety Report 8889939 (Version 1)
Quarter: 2012Q4

REPORT INFORMATION
  Report Type: 
  Country: US (occurrence: US)
  Receive Date: 20121107
  Receipt Date: 20121107
  Transmission Date: 20130627
  Serious: No
  Sender: FDA-Public Use
  Company Number: US-PFIZER INC-2012271577

PATIENT
  Age: 50 Year
  Sex: Female
  Weight: 95.24 kg

DRUGS (2)
  1. PREMPHASE [Suspect]
     Indication: MENSTRUAL DISORDER
     Dosage: 0.625 mg, daily
     Route: 048
     Dates: start: 20121026, end: 20121027
  2. WELLBUTRIN [Concomitant]
     Indication: AFFECTIVE DISORDER
     Dosage: 300 mg, daily

REACTIONS (3)
  - Mood altered [Recovered/Resolved]
  - Hypoaesthesia [Recovered/Resolved]
  - Feeling cold [Recovered/Resolved]
